FAERS Safety Report 7768176-6 (Version None)
Quarter: 2011Q3

REPORT INFORMATION
  Report Type: 
  Country: None (occurrence: None)
  Receive Date: 20110922
  Receipt Date: 20110922
  Transmission Date: 20111222
  Serious: No
  Sender: FDA-Public Use
  Company Number: None

PATIENT
  Age: 29 Year
  Sex: Male
  Weight: 86.182 kg

DRUGS (1)
  1. PROPECIA [Suspect]
     Indication: ANDROGENETIC ALOPECIA
     Dosage: 1MG
     Route: 048
     Dates: start: 20090612, end: 20090812

REACTIONS (2)
  - MENTAL DISORDER [None]
  - GENERAL PHYSICAL CONDITION ABNORMAL [None]
